FAERS Safety Report 8932509 (Version 1)
Quarter: 2012Q4

REPORT INFORMATION
  Report Type: Spontaneous
  Country: US (occurrence: None)
  Receive Date: 20121126
  Receipt Date: 20121126
  Transmission Date: 20130627
  Serious: Yes (Other)
  Sender: FDA-Public Use
  Company Number: None

PATIENT

DRUGS (2)
  1. CARBAMAZEPINE [Suspect]
     Indication: MENTAL DISORDER
     Dosage: 400 - 800 mg
  2. HALOPERIDOL [Suspect]
     Dates: start: 1974, end: 2012

REACTIONS (2)
  - Musculoskeletal stiffness [None]
  - Rash [None]
